FAERS Safety Report 13242184 (Version 1)
Quarter: 2017Q1

REPORT INFORMATION
  Report Type: Spontaneous
  Country: US (occurrence: US)
  Receive Date: 20170217
  Receipt Date: 20170217
  Transmission Date: 20170428
  Serious: Yes (Other)
  Sender: FDA-Public Use
  Company Number: US-CELGENEUS-USA-2017023371

PATIENT

DRUGS (2)
  1. REVLIMID [Suspect]
     Active Substance: LENALIDOMIDE
     Indication: HAEMATOLOGICAL MALIGNANCY
     Dosage: 10 MILLIGRAM
     Route: 048
  2. IPILIMUMAB [Suspect]
     Active Substance: IPILIMUMAB
     Indication: HAEMATOLOGICAL MALIGNANCY
     Dosage: 3 MILLIGRAM/KILOGRAM
     Route: 041

REACTIONS (11)
  - Thrombocytopenia [Recovered/Resolved]
  - Graft versus host disease [Unknown]
  - Pulmonary embolism [Recovered/Resolved]
  - Disease recurrence [Unknown]
  - Dermatitis [Recovered/Resolved]
  - Neutropenia [Recovered/Resolved]
  - Anaemia [Recovered/Resolved]
  - Nausea [Recovered/Resolved]
  - Headache [Recovered/Resolved]
  - Hypertension [Recovered/Resolved]
  - Diarrhoea [Recovered/Resolved]
